FAERS Safety Report 25199161 (Version 1)
Quarter: 2025Q2

REPORT INFORMATION
  Report Type: Spontaneous
  Country: US (occurrence: None)
  Receive Date: 20250415
  Receipt Date: 20250415
  Transmission Date: 20250716
  Serious: Yes (Hospitalization)
  Sender: FDA-CTU
  Company Number: None

PATIENT
  Sex: Female

DRUGS (3)
  1. ADCIRCA [Suspect]
     Active Substance: TADALAFIL
     Indication: Pulmonary arterial hypertension
     Dosage: 40 MG DAILY ORAL
     Route: 048
     Dates: start: 20240524
  2. ORENITRAM [Suspect]
     Active Substance: TREPROSTINIL
  3. REMODULIN [Suspect]
     Active Substance: TREPROSTINIL

REACTIONS (6)
  - Dyspnoea [None]
  - Intestinal haemorrhage [None]
  - Rectal haemorrhage [None]
  - Pneumonia [None]
  - Vascular device infection [None]
  - Mastitis [None]
